FAERS Safety Report 5520088-4 (Version None)
Quarter: 2007Q4

REPORT INFORMATION
  Report Type: 
  Country: None (occurrence: None)
  Receive Date: 20071116
  Receipt Date: 20071112
  Transmission Date: 20080405
  Serious: Yes (Death)
  Sender: FDA-Public Use
  Company Number: DE-SHR-DE-2007-042357

PATIENT
  Age: 61 Year
  Sex: Male
  Weight: 113 kg

DRUGS (2)
  1. FLUDARABINE PHOSPHATE [Suspect]
     Dosage: 25 MG/M2, CYCLES
     Route: 042
     Dates: end: 20040811
  2. CYCLOPHOSPHAMIDE [Suspect]
     Dosage: 250 MG/M2, CYCLES
     Route: 042
     Dates: end: 20040811

REACTIONS (1)
  - SUDDEN CARDIAC DEATH [None]
